FAERS Safety Report 17060754 (Version 1)
Quarter: 2019Q4

REPORT INFORMATION
  Report Type: Spontaneous
  Country: FR (occurrence: FR)
  Receive Date: 20191121
  Receipt Date: 20191121
  Transmission Date: 20200122
  Serious: Yes (Other)
  Sender: FDA-Public Use
  Company Number: FR-AMGEN-FRASP2019189924

PATIENT
  Age: 35 Year
  Sex: Female

DRUGS (26)
  1. LEUCOVORIN [FOLINIC ACID] [Concomitant]
     Active Substance: LEUCOVORIN
  2. CYCLOPHOSPHAMIDE. [Concomitant]
     Active Substance: CYCLOPHOSPHAMIDE
     Dosage: 750 MILLIGRAM/SQ. METER
  3. CYCLOPHOSPHAMIDE. [Concomitant]
     Active Substance: CYCLOPHOSPHAMIDE
     Dosage: 500 MILLIEQUIVALENT PER SQUARE METRE, OVER 24H
  4. CYTARABINE. [Concomitant]
     Active Substance: CYTARABINE
     Dosage: 30 MILLIGRAM/SQ. METER/12 H
  5. VITAMIN B9 [Concomitant]
     Dosage: 50 MILLIGRAM, QOD
     Route: 042
  6. ETOPOSIDE. [Concomitant]
     Active Substance: ETOPOSIDE
     Dosage: 75 MILLIGRAM/SQ. METER
  7. METHOTREXATE. [Concomitant]
     Active Substance: METHOTREXATE
     Dosage: 15 MILLIGRAM
  8. 6-MERCAPTOPURINE MONOHYDRATE [Concomitant]
     Active Substance: MERCAPTOPURINE
     Dosage: 60 MILLIGRAM/SQ. METER, QD
  9. ROMIPLOSTIM [Suspect]
     Active Substance: ROMIPLOSTIM
     Indication: PLATELET COUNT ABNORMAL
     Dosage: 500 MICROGRAM, 2 TIMES/WK
     Route: 058
  10. KIDROLASE [Concomitant]
     Active Substance: ASPARAGINASE
     Dosage: 6000 UI PER METER SQUARE, AT DAYS 8, 10, 12, 16, 18, 20, 22 AND 24
  11. ETOPOSIDE. [Concomitant]
     Active Substance: ETOPOSIDE
     Dosage: 150 MILLIGRAM/SQ. METER
  12. HYDROCORTISONE. [Concomitant]
     Active Substance: HYDROCORTISONE
     Dosage: 40 MILLIGRAM
  13. DARBEPOETIN ALFA [Suspect]
     Active Substance: DARBEPOETIN ALFA
     Indication: PLATELET COUNT ABNORMAL
     Dosage: 500 MICROGRAM, 2 TIMES/WK
     Route: 058
  14. IRON [Concomitant]
     Active Substance: IRON
     Dosage: 1000 MILLIGRAM
     Route: 042
  15. CYTARABINE. [Concomitant]
     Active Substance: CYTARABINE
     Dosage: 40 MILLIGRAM
  16. METHOTREXATE. [Concomitant]
     Active Substance: METHOTREXATE
     Dosage: 25 MILLIGRAM/SQ. METER
  17. PREDNISONE. [Concomitant]
     Active Substance: PREDNISONE
     Dosage: 40 MILLIGRAM/SQ. METER
  18. FILGRASTIM [Suspect]
     Active Substance: FILGRASTIM
     Indication: NEUTROPHIL COUNT ABNORMAL
     Dosage: 300 MICROGRAM, QD
     Route: 042
  19. DAUNORUBICIN [Concomitant]
     Active Substance: DAUNORUBICIN
     Dosage: 250 MILLIGRAM/SQ. METER
  20. ROMIPLOSTIM [Suspect]
     Active Substance: ROMIPLOSTIM
     Indication: B PRECURSOR TYPE ACUTE LEUKAEMIA
  21. DOXORUBICIN [Concomitant]
     Active Substance: DOXORUBICIN
     Dosage: 50 MILLIGRAM/SQ. METER
  22. VINCRISTINE [Concomitant]
     Active Substance: VINCRISTINE
     Dosage: 1.4 MILLIGRAM/SQ. METER UP TO MAXIMUM 2 MG
  23. VINCRISTINE [Concomitant]
     Active Substance: VINCRISTINE
     Dosage: 2 MILLIGRAM
  24. RITUXIMAB. [Concomitant]
     Active Substance: RITUXIMAB
     Dosage: 375 MILLIGRAM/SQ. METER
  25. KIDROLASE [Concomitant]
     Active Substance: ASPARAGINASE
     Dosage: 6000 UI PER METER SQUARE, AT DAYS 8, 10, 12, 16, 18, AND 20
  26. METHOTREXATE. [Concomitant]
     Active Substance: METHOTREXATE
     Dosage: 5000 MILLIGRAM/SQ. METER OVER 24H

REACTIONS (4)
  - Off label use [Unknown]
  - Anaemia [Unknown]
  - Escherichia bacteraemia [Unknown]
  - Deep vein thrombosis [Unknown]
